FAERS Safety Report 21252162 (Version 1)
Quarter: 2022Q3

REPORT INFORMATION
  Report Type: Spontaneous
  Country: CA (occurrence: CA)
  Receive Date: 20220825
  Receipt Date: 20220825
  Transmission Date: 20221027
  Serious: Yes (Disabling, Other)
  Sender: FDA-Public Use
  Company Number: CA-SA-2022SA349371

PATIENT

DRUGS (1)
  1. ZANTAC [Suspect]
     Active Substance: RANITIDINE HYDROCHLORIDE
     Indication: Dyspepsia
     Dosage: UNK
     Route: 048
     Dates: start: 2014, end: 2018

REACTIONS (11)
  - Renal neoplasm [Unknown]
  - Physical disability [Not Recovered/Not Resolved]
  - Mental impairment [Unknown]
  - Emotional disorder [Unknown]
  - Psychological trauma [Unknown]
  - Scar [Unknown]
  - Pain [Unknown]
  - Fatigue [Not Recovered/Not Resolved]
  - Anhedonia [Unknown]
  - General physical health deterioration [Unknown]
  - Insomnia [Unknown]
